FAERS Safety Report 22203802 (Version 1)
Quarter: 2023Q2

REPORT INFORMATION
  Report Type: Spontaneous
  Country: PT (occurrence: None)
  Receive Date: 20230412
  Receipt Date: 20230412
  Transmission Date: 20230721
  Serious: Yes (Other)
  Sender: FDA-Public Use
  Company Number: PT-ROCHE-3321660

PATIENT
  Age: 50 Year
  Sex: Female

DRUGS (1)
  1. ALECTINIB [Suspect]
     Active Substance: ALECTINIB
     Indication: Lung adenocarcinoma stage IV
     Route: 065
     Dates: start: 202112

REACTIONS (2)
  - Lymphadenopathy [Unknown]
  - Sarcoid-like reaction [Unknown]

NARRATIVE: CASE EVENT DATE: 20220923
